FAERS Safety Report 7591986-5 (Version None)
Quarter: 2011Q3

REPORT INFORMATION
  Report Type: 
  Country: None (occurrence: None)
  Receive Date: 20110701
  Receipt Date: 20110701
  Transmission Date: 20111222
  Serious: Yes (Hospitalization)
  Sender: FDA-Public Use
  Company Number: None

PATIENT
  Sex: Male

DRUGS (1)
  1. METHYLPREDNISOLONE [Suspect]
     Dates: start: 20110629, end: 20110629

REACTIONS (2)
  - MEDICATION ERROR [None]
  - INCORRECT DOSE ADMINISTERED [None]
